FAERS Safety Report 6714826-2 (Version None)
Quarter: 2010Q2

REPORT INFORMATION
  Report Type: 
  Country: None (occurrence: None)
  Receive Date: 20100507
  Receipt Date: 20100504
  Transmission Date: 20101027
  Serious: Yes (Hospitalization, Other)
  Sender: FDA-Public Use
  Company Number: US-ASTRAZENECA-2007UW23893

PATIENT
  Age: 41 Year
  Sex: Male
  Weight: 116.1 kg

DRUGS (33)
  1. SEROQUEL [Suspect]
     Indication: ANXIETY
     Dosage: 300 MG, 900 MG TO 1200 MG
     Route: 048
     Dates: start: 19980101, end: 20050701
  2. SEROQUEL [Suspect]
     Indication: AFFECTIVE DISORDER
     Dosage: 300 MG, 900 MG TO 1200 MG
     Route: 048
     Dates: start: 19980101, end: 20050701
  3. SEROQUEL [Suspect]
     Indication: SLEEP DISORDER
     Dosage: 300 MG, 900 MG TO 1200 MG
     Route: 048
     Dates: start: 19980101, end: 20050701
  4. SEROQUEL [Suspect]
     Indication: DISTURBANCE IN ATTENTION
     Dosage: 300 MG, 900 MG TO 1200 MG
     Route: 048
     Dates: start: 19980101, end: 20050701
  5. SEROQUEL [Suspect]
     Dosage: 400-1200 MG
     Route: 048
     Dates: start: 20000526
  6. SEROQUEL [Suspect]
     Dosage: 400-1200 MG
     Route: 048
     Dates: start: 20000526
  7. SEROQUEL [Suspect]
     Dosage: 400-1200 MG
     Route: 048
     Dates: start: 20000526
  8. SEROQUEL [Suspect]
     Dosage: 400-1200 MG
     Route: 048
     Dates: start: 20000526
  9. RISPERDAL [Concomitant]
     Dates: start: 19990101, end: 20041001
  10. ABILIFY [Concomitant]
     Dates: start: 20090101
  11. REMERON [Concomitant]
     Dosage: 15-30 MG
     Route: 048
     Dates: start: 20040117
  12. ELAVIL [Concomitant]
     Route: 048
     Dates: start: 20040522
  13. TRAZODONE HCL [Concomitant]
     Route: 048
     Dates: start: 20000526
  14. LIPITOR [Concomitant]
     Dosage: 10-40 MG
     Route: 048
     Dates: start: 20040117
  15. LABETALOL HCL [Concomitant]
     Indication: HYPERTENSION
     Route: 048
     Dates: start: 20050121
  16. ASPIRIN [Concomitant]
     Route: 048
     Dates: start: 20040117
  17. ZOCOR [Concomitant]
     Dosage: 20-40 MG
     Route: 048
     Dates: start: 20040117
  18. PLAVIX [Concomitant]
     Route: 048
     Dates: start: 20050709
  19. LISINOPRIL [Concomitant]
     Dosage: 10-20 MG
     Route: 048
     Dates: start: 20050709
  20. CARDIZEM CD [Concomitant]
     Dosage: 120-240 MG
     Route: 048
     Dates: start: 20050709
  21. METFORMIN [Concomitant]
     Route: 048
     Dates: start: 20050711
  22. XANAX [Concomitant]
     Indication: ANXIETY
     Dosage: 0.25-0.5 MG
     Route: 048
     Dates: start: 20050709
  23. PEPCID [Concomitant]
     Route: 048
     Dates: start: 20051116
  24. GLUCOTROL XL [Concomitant]
     Dosage: 5-10 MG
     Route: 048
     Dates: start: 20070409
  25. PROZAC [Concomitant]
     Indication: ANXIETY
     Route: 048
     Dates: start: 20000126
  26. PROZAC [Concomitant]
     Indication: DEPRESSION
     Route: 048
     Dates: start: 20000126
  27. NITROGLYCERIN [Concomitant]
     Indication: ANGINA PECTORIS
     Route: 060
     Dates: start: 20050705
  28. ALBUTEROL [Concomitant]
     Dosage: 2 INHALATIONS FOUR TIMES A DAY AS NEEDED
     Route: 055
     Dates: start: 20070409
  29. GABAPENTIN [Concomitant]
     Route: 048
     Dates: start: 20051116
  30. ATIVAN [Concomitant]
     Dates: start: 20000526
  31. HYDROXYZINE HCL [Concomitant]
     Indication: ANXIETY
     Route: 048
     Dates: start: 20051116
  32. FLEXERIL [Concomitant]
     Indication: MUSCLE SPASMS
     Route: 048
  33. GLYBURIDE [Concomitant]
     Dates: start: 20050711

REACTIONS (14)
  - ACUTE CORONARY SYNDROME [None]
  - ANGINA PECTORIS [None]
  - ARTERIOSCLEROSIS [None]
  - ARTERIOSCLEROSIS CORONARY ARTERY [None]
  - CHEST PAIN [None]
  - CORONARY ARTERY DISEASE [None]
  - DIABETES MELLITUS [None]
  - DIABETES MELLITUS INADEQUATE CONTROL [None]
  - DIABETIC KETOACIDOSIS [None]
  - HYPOGLYCAEMIA [None]
  - MYOCARDIAL INFARCTION [None]
  - NEUROPATHY PERIPHERAL [None]
  - PANCREATITIS [None]
  - TYPE 2 DIABETES MELLITUS [None]
